FAERS Safety Report 5509464-3 (Version None)
Quarter: 2007Q4

REPORT INFORMATION
  Report Type: 
  Country: None (occurrence: None)
  Receive Date: 20071106
  Receipt Date: 20071031
  Transmission Date: 20080405
  Serious: Yes (Hospitalization)
  Sender: FDA-Public Use
  Company Number: JPI-P-002239

PATIENT
  Sex: Female

DRUGS (2)
  1. XYREM [Suspect]
     Indication: FIBROMYALGIA
     Dosage: (4.5 GM), ORAL; (6 GM), ORAL
     Route: 048
     Dates: start: 20070101, end: 20070101
  2. XYREM [Suspect]
     Indication: FIBROMYALGIA
     Dosage: (4.5 GM), ORAL; (6 GM), ORAL
     Route: 048
     Dates: start: 20070621, end: 20070101

REACTIONS (3)
  - ANXIETY [None]
  - INCORRECT DOSE ADMINISTERED [None]
  - SLEEP DISORDER [None]
